FAERS Safety Report 7815655-9 (Version None)
Quarter: 2011Q4

REPORT INFORMATION
  Report Type: 
  Country: None (occurrence: None)
  Receive Date: 20111014
  Receipt Date: 20111004
  Transmission Date: 20120403
  Serious: Yes (Hospitalization)
  Sender: FDA-Public Use
  Company Number: IT-NOVOPROD-335222

PATIENT

DRUGS (2)
  1. NOVOSEVEN [Suspect]
     Indication: HAEMOPHILIA A WITH ANTI FACTOR VIII
     Dosage: 1.0 ML, QD
  2. NOVOSEVEN [Suspect]
     Indication: PROPHYLAXIS

REACTIONS (2)
  - WRONG DRUG ADMINISTERED [None]
  - BACTERIAL INFECTION [None]
